FAERS Safety Report 25185886 (Version 2)
Quarter: 2025Q2

REPORT INFORMATION
  Report Type: Spontaneous
  Country: US (occurrence: US)
  Receive Date: 20250410
  Receipt Date: 20250514
  Transmission Date: 20250716
  Serious: No
  Sender: SANOFI AVENTIS
  Company Number: US-SA-2025SA102936

PATIENT
  Age: 69 Year
  Sex: Female

DRUGS (13)
  1. DUPIXENT [Suspect]
     Active Substance: DUPILUMAB
     Indication: Asthma
     Dosage: 200 MG, QOW
     Route: 058
     Dates: start: 202411
  2. AZITHROMYCIN [Concomitant]
     Active Substance: AZITHROMYCIN
  3. METHYLPREDNISOLONE [Concomitant]
     Active Substance: METHYLPREDNISOLONE
  4. KETOCONAZOLE [Concomitant]
     Active Substance: KETOCONAZOLE
  5. MONTELUKAST SODIUM [Concomitant]
     Active Substance: MONTELUKAST SODIUM
  6. DEXAMETHASONE [Concomitant]
     Active Substance: DEXAMETHASONE
  7. METOPROLOL SUCCINATE [Concomitant]
     Active Substance: METOPROLOL SUCCINATE
  8. DULOXETINE [Concomitant]
     Active Substance: DULOXETINE
  9. CHLORPHENIRAMINE MALEATE [Concomitant]
     Active Substance: CHLORPHENIRAMINE MALEATE
  10. ALBUTEROL SULFATE [Concomitant]
     Active Substance: ALBUTEROL SULFATE
  11. FLONASE ALLERGY RELIEF [Concomitant]
     Active Substance: FLUTICASONE PROPIONATE
  12. EPINEPHRINE [Concomitant]
     Active Substance: EPINEPHRINE
  13. TRELEGY ELLIPTA [Concomitant]
     Active Substance: FLUTICASONE FUROATE\UMECLIDINIUM BROMIDE\VILANTEROL TRIFENATATE

REACTIONS (8)
  - Dyspnoea [Recovering/Resolving]
  - Infection [Unknown]
  - Influenza [Recovering/Resolving]
  - Nasal congestion [Recovering/Resolving]
  - Cough [Recovering/Resolving]
  - Pyrexia [Recovering/Resolving]
  - Nasopharyngitis [Recovering/Resolving]
  - Drug ineffective [Unknown]

NARRATIVE: CASE EVENT DATE: 20250301
